FAERS Safety Report 5040152-6 (Version None)
Quarter: 2006Q2

REPORT INFORMATION
  Report Type: 
  Country: None (occurrence: None)
  Receive Date: 20060630
  Receipt Date: 20060621
  Transmission Date: 20061013
  Serious: Yes (Hospitalization)
  Sender: FDA-Public Use
  Company Number: 2006PK01374

PATIENT
  Age: 69 Year
  Sex: Female
  Weight: 78.3 kg

DRUGS (8)
  1. BUPIVACAINE HCL [Suspect]
     Indication: ANAESTHESIA
     Route: 053
  2. BUPIVACAINE HCL [Suspect]
     Route: 053
  3. NAROPIN [Suspect]
     Indication: POSTOPERATIVE ANALGESIA
     Route: 053
  4. NAROPIN [Suspect]
     Route: 053
  5. SUFENTANIL CITRATE [Concomitant]
     Indication: POSTOPERATIVE ANALGESIA
     Route: 053
  6. SUFENTANIL CITRATE [Concomitant]
     Route: 053
  7. FOSINORM [Concomitant]
     Route: 048
  8. NEXIUM [Concomitant]
     Route: 048

REACTIONS (2)
  - MOTOR DYSFUNCTION [None]
  - RENAL FAILURE [None]
